FAERS Safety Report 9706795 (Version 1)
Quarter: 2013Q4

REPORT INFORMATION
  Report Type: Spontaneous
  Country: FR (occurrence: FR)
  Receive Date: 20131125
  Receipt Date: 20131125
  Transmission Date: 20140711
  Serious: Yes (Life-Threatening, Hospitalization)
  Sender: FDA-Public Use
  Company Number: PHHY2013FR134037

PATIENT
  Age: 76 Year
  Sex: Female

DRUGS (6)
  1. AFINITOR [Suspect]
     Indication: BREAST CANCER METASTATIC
     Dosage: 5 MG, QD
     Route: 048
     Dates: start: 20130722
  2. BISOPROLOL [Concomitant]
     Indication: CARDIAC FAILURE
     Dosage: 5 MG, QD
     Route: 048
  3. COVERSYL//PERINDOPRIL ERBUMINE [Concomitant]
     Indication: CARDIAC FAILURE
     Dosage: UNK
     Route: 048
  4. COUMADINE [Concomitant]
     Indication: ARRHYTHMIA
     Dosage: UNK
  5. AROMASINE [Concomitant]
     Indication: BREAST CANCER METASTATIC
     Dosage: 25 MG, UNK
     Route: 048
     Dates: start: 20130722
  6. AVLOCARDYL [Concomitant]
     Indication: CARDIAC FAILURE
     Dosage: UNK

REACTIONS (1)
  - Lung disorder [Not Recovered/Not Resolved]
